FAERS Safety Report 7605918-4 (Version None)
Quarter: 2011Q3

REPORT INFORMATION
  Report Type: 
  Country: None (occurrence: None)
  Receive Date: 20110713
  Receipt Date: 20110704
  Transmission Date: 20111222
  Serious: Yes (Other)
  Sender: FDA-Public Use
  Company Number: DE-ASTRAZENECA-2011SE28012

PATIENT
  Age: 20868 Day
  Sex: Female
  Weight: 58 kg

DRUGS (1)
  1. SYMBICORT [Suspect]
     Indication: COUGH
     Dosage: 160/4.5 1 DF TID
     Route: 055
     Dates: start: 20110420

REACTIONS (1)
  - SYNCOPE [None]
